FAERS Safety Report 8777889 (Version 1)
Quarter: 2012Q4

REPORT INFORMATION
  Report Type: 
  Country: DE (occurrence: DE)
  Receive Date: 20120912
  Receipt Date: 20120912
  Transmission Date: 20130627
  Serious: Yes (Disabling)
  Sender: FDA-Public Use
  Company Number: DE-SANOFI-AVENTIS-2012SA059910

PATIENT
  Age: 83 Year
  Sex: Male
  Weight: 85 kg

DRUGS (6)
  1. MULTAQ [Suspect]
     Indication: ATRIAL FIBRILLATION
     Route: 048
     Dates: start: 20100407, end: 20120817
  2. LEVODOPA [Concomitant]
     Indication: PARKINSON^S DISEASE
  3. PRAMIPEXOL [Concomitant]
     Indication: PARKINSON^S DISEASE
  4. HYDROCHLOROTHIAZIDE [Concomitant]
     Indication: DRUG USE FOR UNKNOWN INDICATION
  5. BISOPROLOL [Concomitant]
     Indication: DRUG USE FOR UNKNOWN INDICATION
  6. LEVOCOMP [Concomitant]
     Indication: PARKINSON^S DISEASE

REACTIONS (1)
  - Tongue discolouration [Recovering/Resolving]
